FAERS Safety Report 6390196-7 (Version None)
Quarter: 2009Q4

REPORT INFORMATION
  Report Type: 
  Country: None (occurrence: None)
  Receive Date: 20091006
  Receipt Date: 20090929
  Transmission Date: 20100525
  Serious: Yes (Hospitalization)
  Sender: FDA-Public Use
  Company Number: A0790209A

PATIENT
  Age: 61 Year
  Sex: Female

DRUGS (2)
  1. AVANDIA [Suspect]
     Dosage: 4MG PER DAY
     Route: 048
     Dates: start: 20040601, end: 20051001
  2. AVANDAMET [Suspect]
     Route: 048
     Dates: start: 20051001

REACTIONS (1)
  - MYOCARDIAL INFARCTION [None]
